FAERS Safety Report 8077296-0 (Version None)
Quarter: 2012Q1

REPORT INFORMATION
  Report Type: 
  Country: None (occurrence: None)
  Receive Date: 20120127
  Receipt Date: 20120124
  Transmission Date: 20120608
  Serious: Yes (Hospitalization)
  Sender: FDA-Public Use
  Company Number: US-JNJFOC-20111109653

PATIENT
  Age: 49 Year
  Sex: Female
  Weight: 87 kg

DRUGS (5)
  1. PACLITAXEL [Suspect]
     Indication: BREAST CANCER
     Route: 042
     Dates: start: 20110308
  2. DOXORUBICIN HCL [Suspect]
     Indication: BREAST CANCER
     Route: 042
     Dates: start: 20110308
  3. BEVACIZUMAB [Suspect]
     Indication: BREAST CANCER
     Route: 042
     Dates: start: 20110308
  4. CYCLOPHOSPHAMIDE [Suspect]
     Indication: BREAST CANCER
     Route: 042
     Dates: start: 20110308
  5. NEULASTA [Suspect]
     Indication: BREAST CANCER
     Route: 058
     Dates: start: 20110308

REACTIONS (4)
  - PULMONARY EMBOLISM [None]
  - VASCULAR ACCESS COMPLICATION [None]
  - DYSPNOEA [None]
  - NON-CARDIAC CHEST PAIN [None]
